FAERS Safety Report 4837441-4 (Version None)
Quarter: 2005Q4

REPORT INFORMATION
  Report Type: 
  Country: None (occurrence: None)
  Receive Date: 20051128
  Receipt Date: 20051117
  Transmission Date: 20060501
  Serious: Yes (Other)
  Sender: FDA-Public Use
  Company Number: JP-JNJFOC-20051103951

PATIENT
  Sex: Male

DRUGS (2)
  1. URO-TARIVID [Suspect]
     Indication: FEBRILE INFECTION
     Route: 048
  2. ACETAMINOPHEN [Concomitant]

REACTIONS (3)
  - EXTRAPYRAMIDAL DISORDER [None]
  - GAIT DISTURBANCE [None]
  - PARAESTHESIA [None]
